FAERS Safety Report 24186155 (Version 1)
Quarter: 2024Q3

REPORT INFORMATION
  Report Type: Spontaneous
  Country: CN (occurrence: CN)
  Receive Date: 20240808
  Receipt Date: 20240808
  Transmission Date: 20241017
  Serious: Yes (Hospitalization)
  Sender: SHENZHEN TECHDOW PHARMACEUTICAL
  Company Number: CN-91440300279544901A-J2024HPR000479

PATIENT
  Age: 66 Year
  Sex: Male
  Weight: 80 kg

DRUGS (1)
  1. ENOXAPARIN SODIUM [Suspect]
     Active Substance: ENOXAPARIN SODIUM
     Indication: Thrombosis prophylaxis
     Dosage: 3000IU,QD
     Dates: start: 20240711, end: 20240712

REACTIONS (1)
  - Coagulopathy [Recovered/Resolved]

NARRATIVE: CASE EVENT DATE: 20240712
